FAERS Safety Report 20529918 (Version 2)
Quarter: 2022Q1

REPORT INFORMATION
  Report Type: Report from Study
  Country: JP (occurrence: JP)
  Receive Date: 20220301
  Receipt Date: 20220311
  Transmission Date: 20220423
  Serious: Yes (Other)
  Sender: FDA-Public Use
  Company Number: JP-CELLTRION INC.-2020JP025845

PATIENT

DRUGS (8)
  1. INFLIXIMAB-DYYB [Suspect]
     Active Substance: INFLIXIMAB-DYYB
     Indication: Crohn^s disease
     Dosage: 200 MG
     Route: 041
     Dates: start: 20181030, end: 20181030
  2. INFLIXIMAB-DYYB [Suspect]
     Active Substance: INFLIXIMAB-DYYB
     Dosage: 200 MG
     Route: 041
     Dates: start: 20181225, end: 20181225
  3. INFLIXIMAB-DYYB [Suspect]
     Active Substance: INFLIXIMAB-DYYB
     Dosage: 200 MG
     Route: 041
     Dates: start: 20190219, end: 20190219
  4. INFLIXIMAB-DYYB [Suspect]
     Active Substance: INFLIXIMAB-DYYB
     Dosage: 200 MG
     Route: 041
     Dates: start: 20190416, end: 20190416
  5. INFLIXIMAB-DYYB [Suspect]
     Active Substance: INFLIXIMAB-DYYB
     Dosage: 200 MG
     Route: 041
     Dates: start: 20191001, end: 20191001
  6. INFLIXIMAB-DYYB [Suspect]
     Active Substance: INFLIXIMAB-DYYB
     Dosage: 195 MG
     Route: 041
     Dates: start: 20201110, end: 20201110
  7. INFLIXIMAB-DYYB [Suspect]
     Active Substance: INFLIXIMAB-DYYB
     Dosage: 190 MG
     Route: 041
     Dates: start: 20211026, end: 20211026
  8. MESALAMINE [Concomitant]
     Active Substance: MESALAMINE
     Dosage: 2000 MILLIGRAM, DAILY
     Route: 048

REACTIONS (3)
  - Cataract [Recovered/Resolved]
  - Constipation [Recovered/Resolved]
  - Product use issue [Unknown]

NARRATIVE: CASE EVENT DATE: 20181127
